FAERS Safety Report 5554902-3 (Version None)
Quarter: 2007Q4

REPORT INFORMATION
  Report Type: 
  Country: None (occurrence: None)
  Receive Date: 20071213
  Receipt Date: 20071207
  Transmission Date: 20080405
  Serious: Yes (Hospitalization)
  Sender: FDA-Public Use
  Company Number: FR-WYE-G00741907

PATIENT
  Sex: Female

DRUGS (2)
  1. EFFEXOR XR [Suspect]
     Indication: DEPRESSION
     Dosage: 225 MG TOTAL DAILY
     Route: 048
     Dates: start: 20070101
  2. LEXOMIL [Concomitant]
     Dosage: 1 TABLET DAILY
     Route: 048

REACTIONS (5)
  - ACUTE PULMONARY OEDEMA [None]
  - CARDIAC FAILURE ACUTE [None]
  - CONGESTIVE CARDIOMYOPATHY [None]
  - OEDEMA PERIPHERAL [None]
  - VENTRICULAR HYPOKINESIA [None]
